FAERS Safety Report 24575841 (Version 1)
Quarter: 2024Q4

REPORT INFORMATION
  Report Type: Spontaneous
  Country: US (occurrence: None)
  Receive Date: 20241101
  Receipt Date: 20241101
  Transmission Date: 20250115
  Serious: Yes (Hospitalization)
  Sender: Public
  Company Number: None

PATIENT
  Age: 81 Year
  Sex: Male

DRUGS (1)
  1. NUPLAZID [Suspect]
     Active Substance: PIMAVANSERIN TARTRATE
     Indication: Parkinson^s disease
     Dosage: 34.MG DAILY ORAL
     Route: 048
     Dates: start: 20240930, end: 20241010

REACTIONS (8)
  - Anger [None]
  - Gait inability [None]
  - Paranoia [None]
  - Confusional state [None]
  - Memory impairment [None]
  - Hallucination [None]
  - Delusion [None]
  - Therapy interrupted [None]

NARRATIVE: CASE EVENT DATE: 20241009
